FAERS Safety Report 16654181 (Version 1)
Quarter: 2019Q3

REPORT INFORMATION
  Report Type: Spontaneous
  Country: US (occurrence: US)
  Receive Date: 20190731
  Receipt Date: 20190731
  Transmission Date: 20191004
  Serious: Yes (Disabling)
  Sender: FDA-Public Use
  Company Number: US-SA-2019SA204732

PATIENT
  Age: 61 Year
  Sex: Male

DRUGS (15)
  1. AUBAGIO [Suspect]
     Active Substance: TERIFLUNOMIDE
     Indication: MULTIPLE SCLEROSIS
     Dosage: 14 MG, QD
     Route: 048
     Dates: start: 20150529
  2. CELEBREX [Concomitant]
     Active Substance: CELECOXIB
  3. TRAZODONE [Concomitant]
     Active Substance: TRAZODONE HYDROCHLORIDE
  4. CLINDAMYCIN. [Concomitant]
     Active Substance: CLINDAMYCIN
  5. COENZYME Q10 [Concomitant]
     Active Substance: UBIDECARENONE
  6. LORAZEPAM. [Concomitant]
     Active Substance: LORAZEPAM
  7. MIRAPEX [Concomitant]
     Active Substance: PRAMIPEXOLE DIHYDROCHLORIDE
  8. BACLOFEN. [Concomitant]
     Active Substance: BACLOFEN
  9. MAGNESIUM [Concomitant]
     Active Substance: MAGNESIUM
  10. MELATONIN [Concomitant]
     Active Substance: MELATONIN
  11. MYRBETRIQ [Concomitant]
     Active Substance: MIRABEGRON
  12. OMEPRAZOLE. [Concomitant]
     Active Substance: OMEPRAZOLE
  13. VITAMIN B COMPLEX [Concomitant]
     Active Substance: CYANOCOBALAMIN\DEXPANTHENOL\NIACINAMIDE\PYRIDOXINE HYDROCHLORIDE\RIBOFLAVIN 5^-PHOSPHATE SODIUM\THIAMINE HYDROCHLORIDE\VITAMIN B COMPLEX
  14. VITAMIN D NOS [Concomitant]
     Active Substance: VITAMIN D NOS
  15. AMPYRA [Concomitant]
     Active Substance: DALFAMPRIDINE

REACTIONS (1)
  - Gait disturbance [Unknown]
